FAERS Safety Report 10208441 (Version 1)
Quarter: 2014Q2

REPORT INFORMATION
  Report Type: Spontaneous
  Country: US (occurrence: US)
  Receive Date: 20140530
  Receipt Date: 20140530
  Transmission Date: 20141212
  Serious: Yes (Death, Life-Threatening, Hospitalization, Disabling, Other)
  Sender: FDA-Public Use
  Company Number: US-GLAXOSMITHKLINE-A1074380A

PATIENT
  Sex: Male

DRUGS (2)
  1. MEKINIST [Suspect]
     Indication: MALIGNANT MELANOMA
     Dosage: 2MG PER DAY
     Route: 048
  2. TAFINLAR [Suspect]
     Indication: MALIGNANT MELANOMA
     Dosage: 150MG TWICE PER DAY
     Route: 048

REACTIONS (8)
  - Renal failure [Recovering/Resolving]
  - Rhabdomyolysis [Recovering/Resolving]
  - Cerebral haemorrhage [Recovered/Resolved]
  - Cardiomyopathy [Unknown]
  - Death [Fatal]
  - Pyrexia [Not Recovered/Not Resolved]
  - Ejection fraction decreased [Unknown]
  - Neoplasm progression [Fatal]
